FAERS Safety Report 11063149 (Version 1)
Quarter: 2015Q2

REPORT INFORMATION
  Report Type: Spontaneous
  Country: GB (occurrence: GB)
  Receive Date: 20150424
  Receipt Date: 20150424
  Transmission Date: 20150821
  Serious: Yes (Other)
  Sender: FDA-Public Use
  Company Number: GB-PFIZER INC-2015137333

PATIENT
  Age: 73 Year
  Sex: Female

DRUGS (6)
  1. PREGABALIN. [Concomitant]
     Active Substance: PREGABALIN
     Dosage: UNK
     Dates: start: 20141017, end: 20150311
  2. LYRICA [Concomitant]
     Active Substance: PREGABALIN
     Dosage: UNK
     Dates: start: 20150311
  3. HYDROCORTISONE. [Concomitant]
     Active Substance: HYDROCORTISONE
     Dosage: UNK
     Dates: start: 20150224, end: 20150303
  4. RAMIPRIL. [Suspect]
     Active Substance: RAMIPRIL
     Dosage: 1.25 MG, UNK
     Route: 048
     Dates: start: 20150325, end: 20150401
  5. CLOMIPRAMINE [Concomitant]
     Active Substance: CLOMIPRAMINE
     Dosage: UNK
     Dates: start: 20140722
  6. SIMVASTATIN. [Concomitant]
     Active Substance: SIMVASTATIN
     Dosage: UNK
     Dates: start: 20140722

REACTIONS (5)
  - Dysphagia [Recovered/Resolved]
  - Swelling face [Recovered/Resolved]
  - Dysarthria [Recovered/Resolved]
  - Spasmodic dysphonia [Recovered/Resolved]
  - Gingival swelling [Recovered/Resolved]

NARRATIVE: CASE EVENT DATE: 20150325
